FAERS Safety Report 20896045 (Version 1)
Quarter: 2022Q2

REPORT INFORMATION
  Report Type: Spontaneous
  Country: PR (occurrence: US)
  Receive Date: 20220531
  Receipt Date: 20220531
  Transmission Date: 20220721
  Serious: No
  Sender: FDA-Public Use
  Company Number: PR-TRIS PHARMA, INC.-22US010123

PATIENT

DRUGS (4)
  1. DYANAVEL XR [Suspect]
     Active Substance: AMPHETAMINE
     Indication: Product used for unknown indication
     Dosage: 5 ML, MORNING
     Route: 048
  2. DYANAVEL XR [Suspect]
     Active Substance: AMPHETAMINE
     Dosage: 1.5 ML, MORNING
     Route: 048
     Dates: start: 201806
  3. DYANAVEL XR [Suspect]
     Active Substance: AMPHETAMINE
     Dosage: 1.5 MILLILITRE, MORNING
     Route: 048
  4. DYANAVEL XR [Suspect]
     Active Substance: AMPHETAMINE
     Dosage: UNK
     Route: 048

REACTIONS (2)
  - Haematuria [Unknown]
  - Chromaturia [Not Recovered/Not Resolved]

NARRATIVE: CASE EVENT DATE: 20211101
